FAERS Safety Report 18353240 (Version 1)
Quarter: 2020Q4

REPORT INFORMATION
  Report Type: Spontaneous
  Country: CO (occurrence: CO)
  Receive Date: 20201007
  Receipt Date: 20201007
  Transmission Date: 20210114
  Serious: Yes (Other)
  Sender: FDA-Public Use
  Company Number: CO-ALVOGEN-2020-ALVOGEN-114778

PATIENT
  Age: 22 Year
  Sex: Female

DRUGS (1)
  1. NAPROXEN. [Suspect]
     Active Substance: NAPROXEN
     Indication: BACK PAIN

REACTIONS (6)
  - Eosinophilic pneumonia [Unknown]
  - Drug reaction with eosinophilia and systemic symptoms [Unknown]
  - Lung consolidation [Unknown]
  - Acute hepatic failure [Unknown]
  - Pleural effusion [Unknown]
  - Pericardial effusion [Unknown]
